FAERS Safety Report 7831190-6 (Version None)
Quarter: 2011Q4

REPORT INFORMATION
  Report Type: 
  Country: None (occurrence: None)
  Receive Date: 20111021
  Receipt Date: 20111007
  Transmission Date: 20120403
  Serious: Yes (Other)
  Sender: FDA-Public Use
  Company Number: SE-ROCHE-1001199

PATIENT
  Sex: Female
  Weight: 72 kg

DRUGS (10)
  1. ALVEDON [Concomitant]
     Indication: PAIN
     Dates: start: 20101011
  2. FOLIC ACID [Concomitant]
     Dates: start: 20100712
  3. PREDNISOLONE [Concomitant]
     Indication: INFLAMMATION
     Dates: start: 20100705
  4. NATRIUMKLORID [Concomitant]
     Route: 042
  5. SUMATRIPTAN SUCCINATE [Concomitant]
     Indication: MIGRAINE
     Dates: start: 20101129
  6. ACTEMRA [Suspect]
     Indication: PRODUCT USED FOR UNKNOWN INDICATION
     Dosage: 576 MG
     Route: 042
     Dates: start: 20110908, end: 20110908
  7. ACETAMINOPHEN W/ CODEINE [Concomitant]
     Indication: PAIN
     Route: 042
     Dates: start: 20110121
  8. OMEPRAZOLE [Concomitant]
     Dates: start: 20100909
  9. PROPAVAN [Concomitant]
     Indication: SLEEP DISORDER
     Dates: start: 20100712
  10. METHOTREXATE [Concomitant]
     Indication: RHEUMATOID ARTHRITIS
     Dates: start: 20100712

REACTIONS (2)
  - ASTHMA [None]
  - DYSPNOEA [None]
